FAERS Safety Report 21255153 (Version 2)
Quarter: 2022Q3

REPORT INFORMATION
  Report Type: Spontaneous
  Country: US (occurrence: US)
  Receive Date: 20220825
  Receipt Date: 20220907
  Transmission Date: 20221026
  Serious: Yes (Hospitalization)
  Sender: FDA-Public Use
  Company Number: US-INCYTE CORPORATION-2022IN007928

PATIENT

DRUGS (1)
  1. JAKAFI [Suspect]
     Active Substance: RUXOLITINIB
     Dosage: 15 MILLIGRAM, BID
     Route: 048

REACTIONS (10)
  - Gastrointestinal viral infection [Unknown]
  - Oral candidiasis [Unknown]
  - Pyrexia [Unknown]
  - Asthenia [Unknown]
  - Cough [Unknown]
  - Pain [Unknown]
  - Decreased activity [Unknown]
  - Fatigue [Unknown]
  - Product dose omission issue [Unknown]
  - Dyspnoea [Unknown]
